FAERS Safety Report 18600541 (Version 1)
Quarter: 2020Q4

REPORT INFORMATION
  Report Type: Spontaneous
  Country: US (occurrence: US)
  Receive Date: 20201210
  Receipt Date: 20201210
  Transmission Date: 20210114
  Serious: Yes (Other)
  Sender: FDA-Public Use
  Company Number: None

PATIENT
  Age: 52 Year
  Sex: Female
  Weight: 163 kg

DRUGS (10)
  1. ASPIRIN. [Concomitant]
     Active Substance: ASPIRIN
  2. ARMOUR THYROID [Concomitant]
     Active Substance: THYROID, PORCINE
  3. HYDROCODONE-ACETAMINOPHEN [Concomitant]
     Active Substance: ACETAMINOPHEN\HYDROCODONE
  4. DULOXETINE. [Concomitant]
     Active Substance: DULOXETINE
  5. INSULIN DEGLUDEC [Concomitant]
     Active Substance: INSULIN DEGLUDEC
  6. BAMLANIVIMAB. [Suspect]
     Active Substance: BAMLANIVIMAB
     Indication: COVID-19
     Dosage: ?          OTHER FREQUENCY:ONCE;?
     Route: 042
  7. ARIPRAZOLE [Concomitant]
     Active Substance: ARIPIPRAZOLE
  8. FAMOTIDINE. [Concomitant]
     Active Substance: FAMOTIDINE
  9. INSULIN LISPRO [Concomitant]
     Active Substance: INSULIN LISPRO
  10. LAMOTRIGINE. [Concomitant]
     Active Substance: LAMOTRIGINE

REACTIONS (2)
  - White blood cell count decreased [None]
  - Dyspnoea [None]

NARRATIVE: CASE EVENT DATE: 20201208
